FAERS Safety Report 5841099-5 (Version None)
Quarter: 2008Q3

REPORT INFORMATION
  Report Type: 
  Country: None (occurrence: None)
  Receive Date: 20080811
  Receipt Date: 20080811
  Transmission Date: 20090109
  Serious: No
  Sender: FDA-Public Use
  Company Number: None

PATIENT
  Sex: Male
  Weight: 87.0906 kg

DRUGS (2)
  1. CIPRO [Suspect]
     Indication: PROSTATITIS
     Dosage: 500MG BID X 8 WKS PO
     Route: 048
     Dates: start: 20080423
  2. CIPRO [Suspect]
     Indication: PROSTATITIS
     Dosage: 500MG BID X 8 WKS PO
     Route: 048
     Dates: start: 20080701

REACTIONS (7)
  - DRUG INEFFECTIVE [None]
  - DYSURIA [None]
  - MUSCLE STRAIN [None]
  - MUSCLE TIGHTNESS [None]
  - MYALGIA [None]
  - PAIN IN EXTREMITY [None]
  - THROMBOSIS [None]
